FAERS Safety Report 7409354-5 (Version None)
Quarter: 2011Q1

REPORT INFORMATION
  Report Type: 
  Country: None (occurrence: None)
  Receive Date: 20110301
  Receipt Date: 20100912
  Transmission Date: 20110831
  Serious: Yes (Hospitalization, Other)
  Sender: FDA-Public Use
  Company Number: RB-15195-2010

PATIENT
  Age: 24 Month

DRUGS (1)
  1. SUBOXONE [Suspect]
     Indication: DRUG DEPENDENCE
     Dosage: (ORAL)
     Route: 048
     Dates: start: 20100801, end: 20100801

REACTIONS (2)
  - RESPIRATORY DEPRESSION [None]
  - ACCIDENTAL DRUG INTAKE BY CHILD [None]
